FAERS Safety Report 25614508 (Version 1)
Quarter: 2025Q3

REPORT INFORMATION
  Report Type: Other
  Country: US (occurrence: US)
  Receive Date: 20250729
  Receipt Date: 20250729
  Transmission Date: 20251020
  Serious: Yes (Death, Hospitalization, Other)
  Sender: ANI
  Company Number: US-ANIPHARMA-023759

PATIENT
  Sex: Male

DRUGS (7)
  1. CLARITHROMYCIN [Suspect]
     Active Substance: CLARITHROMYCIN
     Indication: Lepromatous leprosy
  2. VANCOMYCIN [Suspect]
     Active Substance: VANCOMYCIN
     Indication: Multiple organ dysfunction syndrome
  3. MINOCYCLINE [Concomitant]
     Active Substance: MINOCYCLINE HYDROCHLORIDE
     Indication: Lepromatous leprosy
  4. MOXIFLOXACIN [Concomitant]
     Active Substance: MOXIFLOXACIN
     Indication: Lepromatous leprosy
  5. PREDNISONE [Concomitant]
     Active Substance: PREDNISONE
     Indication: Addison^s disease
  6. DOXYCYCLINE [Concomitant]
     Active Substance: DOXYCYCLINE
     Indication: Multiple organ dysfunction syndrome
  7. PIPERACILLIN SODIUM\TAZOBACTAM SODIUM [Concomitant]
     Active Substance: PIPERACILLIN SODIUM\TAZOBACTAM SODIUM
     Indication: Multiple organ dysfunction syndrome

REACTIONS (3)
  - Histoplasmosis disseminated [Fatal]
  - Haemophagocytic lymphohistiocytosis [Fatal]
  - Drug ineffective [Unknown]
